FAERS Safety Report 24989412 (Version 1)
Quarter: 2025Q1

REPORT INFORMATION
  Report Type: Spontaneous
  Country: IT (occurrence: IT)
  Receive Date: 20250220
  Receipt Date: 20250220
  Transmission Date: 20250409
  Serious: Yes (Other)
  Sender: SANDOZ
  Company Number: IT-BRISTOL-MYERS SQUIBB COMPANY-2024-071504

PATIENT
  Age: 56 Year
  Sex: Female
  Weight: 60 kg

DRUGS (18)
  1. CARBOPLATIN [Suspect]
     Active Substance: CARBOPLATIN
     Indication: Non-small cell lung cancer
     Route: 065
     Dates: start: 20240422
  2. IPILIMUMAB [Suspect]
     Active Substance: IPILIMUMAB
     Route: 042
     Dates: start: 20240412
  3. IPILIMUMAB [Suspect]
     Active Substance: IPILIMUMAB
     Indication: Non-small cell lung cancer
     Route: 042
     Dates: start: 20240301, end: 20240816
  4. NIVOLUMAB [Suspect]
     Active Substance: NIVOLUMAB
     Indication: Non-small cell lung cancer
     Dosage: 360 MG, TIW
     Route: 042
     Dates: start: 20240301, end: 20240816
  5. NIVOLUMAB [Suspect]
     Active Substance: NIVOLUMAB
     Dosage: 360 MG, TIW
     Route: 042
     Dates: start: 20240412
  6. PEMETREXED [Suspect]
     Active Substance: PEMETREXED
     Indication: Non-small cell lung cancer
     Route: 065
     Dates: start: 20240322
  7. AMIODARONE [Concomitant]
     Active Substance: AMIODARONE
     Indication: Product used for unknown indication
     Route: 042
  8. ZOFENOPRIL [Concomitant]
     Active Substance: ZOFENOPRIL
     Indication: Product used for unknown indication
     Route: 065
  9. BISOPROLOL FUMARATE [Concomitant]
     Active Substance: BISOPROLOL FUMARATE
     Indication: Product used for unknown indication
     Route: 065
  10. CETIRIZINE HYDROCHLORIDE [Concomitant]
     Active Substance: CETIRIZINE HYDROCHLORIDE
     Indication: Product used for unknown indication
     Route: 065
  11. ENOXAPARIN SODIUM [Concomitant]
     Active Substance: ENOXAPARIN SODIUM
     Route: 065
  12. ENOXAPARIN SODIUM [Concomitant]
     Active Substance: ENOXAPARIN SODIUM
     Indication: Product used for unknown indication
     Route: 065
  13. PREDNISONE [Concomitant]
     Active Substance: PREDNISONE
     Indication: Product used for unknown indication
     Route: 065
  14. PREDNISONE [Concomitant]
     Active Substance: PREDNISONE
     Route: 065
  15. OXYCONTIN [Concomitant]
     Active Substance: OXYCODONE HYDROCHLORIDE
     Indication: Product used for unknown indication
     Route: 065
  16. OXYCONTIN [Concomitant]
     Active Substance: OXYCODONE HYDROCHLORIDE
     Route: 065
  17. PANTOPRAZOLE SODIUM [Concomitant]
     Active Substance: PANTOPRAZOLE SODIUM
     Indication: Product used for unknown indication
     Route: 065
  18. ZOMETA [Concomitant]
     Active Substance: ZOLEDRONIC ACID
     Indication: Product used for unknown indication
     Route: 065

REACTIONS (8)
  - Atrial fibrillation [Recovered/Resolved]
  - Asthenia [Not Recovered/Not Resolved]
  - Oedema peripheral [Recovered/Resolved]
  - Face oedema [Not Recovered/Not Resolved]
  - Diarrhoea [Recovered/Resolved]
  - Pruritus [Not Recovered/Not Resolved]
  - Back pain [Not Recovered/Not Resolved]
  - Pain in extremity [Not Recovered/Not Resolved]

NARRATIVE: CASE EVENT DATE: 20240503
